FAERS Safety Report 17125236 (Version 1)
Quarter: 2019Q4

REPORT INFORMATION
  Report Type: Report from Study
  Country: None (occurrence: US)
  Receive Date: 20191206
  Receipt Date: 20191206
  Transmission Date: 20200122
  Serious: Yes (Other)
  Sender: FDA-Public Use
  Company Number: US-ABBVIE-19K-163-3171093-00

PATIENT
  Age: 22 Year
  Sex: Female

DRUGS (2)
  1. HUMIRA [Suspect]
     Active Substance: ADALIMUMAB
     Indication: PRODUCT USED FOR UNKNOWN INDICATION
     Route: 058
  2. REMICADE [Suspect]
     Active Substance: INFLIXIMAB
     Indication: PRODUCT USED FOR UNKNOWN INDICATION
     Route: 065

REACTIONS (7)
  - Cholangitis sclerosing [Unknown]
  - Intestinal resection [Unknown]
  - Crohn^s disease [Unknown]
  - Systemic lupus erythematosus [Unknown]
  - Drug ineffective [Unknown]
  - Oesophageal spasm [Unknown]
  - Cholecystectomy [Unknown]
